FAERS Safety Report 5473994-3 (Version None)
Quarter: 2007Q3

REPORT INFORMATION
  Report Type: 
  Country: None (occurrence: None)
  Receive Date: 20070830
  Receipt Date: 20070507
  Transmission Date: 20080115
  Serious: Yes (Hospitalization)
  Sender: FDA-Public Use
  Company Number: 240864

PATIENT
  Age: 62 Year
  Sex: Female
  Weight: 68 kg

DRUGS (10)
  1. XOLAIR [Suspect]
     Indication: ASTHMA
     Dosage: 150 MG, Q4W, SUBCUTANEOUS
     Route: 058
     Dates: start: 20040518
  2. LORATADINE [Concomitant]
  3. SINGULAIR [Concomitant]
  4. THEO-24 (THEOPHYLLINE) [Concomitant]
  5. SEREVENT DISKUS (SALMETEROL XINAFOATE) [Concomitant]
  6. FLOVENT [Concomitant]
  7. COMBIVENT [Concomitant]
  8. LIPITOR [Concomitant]
  9. ALBUTEROL (ALBUTEROL/ALBUTEROL SULFATE) [Concomitant]
  10. GLYBURIDE [Concomitant]

REACTIONS (1)
  - COLON CANCER [None]
